FAERS Safety Report 7405152 (Version 6)
Quarter: 2013Q4

REPORT INFORMATION
  Report Type: Spontaneous
  Country: US (occurrence: US)
  Receive Date: 20100601
  Receipt Date: 20131209
  Transmission Date: 20140711
  Serious: Yes (Hospitalization, Other)
  Sender: FDA-Public Use
  Company Number: US-BAYER-201023612NA

PATIENT
  Age: 47 Year
  Sex: Female
  Weight: 56.69 kg

DRUGS (17)
  1. YAZ [Suspect]
     Dates: start: 2004
  2. SYNTHROID [Concomitant]
     Indication: THYROID DISORDER
     Dates: start: 200404
  3. ZIAC [Concomitant]
     Indication: BLOOD PRESSURE ABNORMAL
     Dates: start: 200504
  4. ANTIBIOTICS [Concomitant]
  5. NECON [Concomitant]
  6. IMITREX [Concomitant]
  7. AMOXICILLIN W/CLAVULANATE POTASSIUM [Concomitant]
     Dosage: 875-125
  8. HISTA-VENT DA [Concomitant]
  9. BETAMETHA [Concomitant]
     Dosage: 0.05 %, UNK
  10. CIPROFLOXACIN [Concomitant]
     Dosage: 500 MG, UNK
  11. TAMIFLU [Concomitant]
     Dosage: 75 MG, UNK
  12. CARISOPRODOL [Concomitant]
     Dosage: 350 MG, UNK
  13. AZITHROMYCIN [Concomitant]
     Dosage: 250 MG, UNK
  14. METHYLPREDNISOLONE [METHYLPREDNISOLONE] [Concomitant]
     Dosage: 4 MG, UNK
  15. VYTORIN [Concomitant]
     Dosage: 10/20 MG
  16. ALEVE [Concomitant]
  17. GOODYS [Concomitant]

REACTIONS (5)
  - Gallbladder non-functioning [Unknown]
  - Cholecystitis [None]
  - Gallbladder pain [Unknown]
  - Abdominal pain [Unknown]
  - Nausea [Unknown]
